FAERS Safety Report 7961539-5 (Version None)
Quarter: 2011Q4

REPORT INFORMATION
  Report Type: 
  Country: None (occurrence: None)
  Receive Date: 20111207
  Receipt Date: 20111201
  Transmission Date: 20120403
  Serious: Yes (Death, Other)
  Sender: FDA-Public Use
  Company Number: JP-ASTELLAS-2011JP008817

PATIENT
  Age: 60 Year
  Sex: Male

DRUGS (5)
  1. PROGRAF [Suspect]
     Indication: PROPHYLAXIS AGAINST GRAFT VERSUS HOST DISEASE
     Route: 065
  2. MYCOPHENOLATE MOFETIL [Concomitant]
     Indication: PROPHYLAXIS AGAINST GRAFT VERSUS HOST DISEASE
     Route: 065
  3. FOSCARNET [Concomitant]
     Route: 065
  4. FLUDARABINE PHOSPHATE [Concomitant]
     Indication: PREMEDICATION
     Route: 065
  5. MELPHALAN HYDROCHLORIDE [Concomitant]
     Indication: PREMEDICATION
     Route: 065

REACTIONS (3)
  - ENCEPHALITIS HERPES [None]
  - PNEUMONIA [None]
  - HEPATITIS VIRAL [None]
